FAERS Safety Report 6745393-5 (Version None)
Quarter: 2010Q2

REPORT INFORMATION
  Report Type: 
  Country: None (occurrence: None)
  Receive Date: 20100528
  Receipt Date: 20100519
  Transmission Date: 20101027
  Serious: No
  Sender: FDA-Public Use
  Company Number: 2009BI023482

PATIENT
  Age: 49 Year
  Sex: Female

DRUGS (2)
  1. TYSABRI [Suspect]
     Indication: MULTIPLE SCLEROSIS
     Route: 042
     Dates: start: 20090713
  2. AVONEX [Concomitant]
     Indication: MULTIPLE SCLEROSIS
     Route: 030

REACTIONS (6)
  - BLOOD COUNT ABNORMAL [None]
  - INFUSION SITE RASH [None]
  - MEMORY IMPAIRMENT [None]
  - PRURITUS [None]
  - RASH [None]
  - WHITE BLOOD CELL COUNT ABNORMAL [None]
